FAERS Safety Report 10154746 (Version 1)
Quarter: 2014Q2

REPORT INFORMATION
  Report Type: Spontaneous
  Country: US (occurrence: None)
  Receive Date: 20140505
  Receipt Date: 20140505
  Transmission Date: 20141212
  Serious: No
  Sender: FDA-Public Use
  Company Number: None

PATIENT
  Age: 54 Year
  Sex: Female
  Weight: 97.07 kg

DRUGS (1)
  1. URSO FORTE [Suspect]
     Indication: BILIARY CIRRHOSIS PRIMARY
     Route: 048
     Dates: start: 20100417, end: 20140502

REACTIONS (5)
  - Tinnitus [None]
  - Weight increased [None]
  - Alopecia [None]
  - Oedema peripheral [None]
  - Pain in extremity [None]
